FAERS Safety Report 4947092-9 (Version None)
Quarter: 2006Q1

REPORT INFORMATION
  Report Type: 
  Country: None (occurrence: None)
  Receive Date: 20060317
  Receipt Date: 20060301
  Transmission Date: 20060701
  Serious: Yes (Death)
  Sender: FDA-Public Use
  Company Number: 2006SE01258

PATIENT
  Age: 12391 Day
  Sex: Female

DRUGS (9)
  1. SEROQUEL [Suspect]
     Indication: BIPOLAR I DISORDER
     Route: 048
     Dates: start: 20051021, end: 20051024
  2. SEROQUEL [Suspect]
     Route: 048
     Dates: start: 20051025, end: 20051130
  3. SEROQUEL [Suspect]
     Route: 048
     Dates: start: 20051201
  4. SEROQUEL [Suspect]
     Route: 048
     Dates: start: 20060211, end: 20060211
  5. LITICARB [Concomitant]
     Indication: BIPOLAR DISORDER
     Route: 048
  6. RIVOTRIL [Concomitant]
     Indication: BIPOLAR DISORDER
     Route: 048
  7. GERODORM [Concomitant]
     Indication: INSOMNIA
     Route: 048
  8. PROZAC [Concomitant]
     Indication: BIPOLAR DISORDER
     Route: 048
     Dates: start: 20051103, end: 20051201
  9. PROZAC [Concomitant]
     Route: 048
     Dates: start: 20051202

REACTIONS (2)
  - COMPLETED SUICIDE [None]
  - INTENTIONAL OVERDOSE [None]
